FAERS Safety Report 4666503-X (Version None)
Quarter: 2005Q2

REPORT INFORMATION
  Report Type: 
  Country: None (occurrence: None)
  Receive Date: 20050519
  Receipt Date: 20050509
  Transmission Date: 20051028
  Serious: Yes (Other)
  Sender: FDA-Public Use
  Company Number: US-ABBOTT-05P-163-0300058-00

PATIENT
  Sex: Female
  Weight: 64.014 kg

DRUGS (12)
  1. HUMIRA 40 MG/ 0.8 ML PRE-FILLED SYRINGE [Suspect]
     Indication: RHEUMATOID ARTHRITIS
     Route: 058
     Dates: start: 20050101
  2. TOLTERODINE TARTRATE [Concomitant]
     Indication: URINARY INCONTINENCE
     Route: 048
     Dates: start: 20040101
  3. CLOPIDOGREL BISULFATE [Concomitant]
     Indication: THROMBOSIS PROPHYLAXIS
     Route: 048
     Dates: start: 20040301
  4. PREDNISONE TAB [Concomitant]
     Indication: RHEUMATOID ARTHRITIS
     Route: 048
  5. ATORVASTATIN CALCIUM [Concomitant]
     Indication: BLOOD CHOLESTEROL INCREASED
     Route: 048
     Dates: start: 19920101
  6. ATENOLOL [Concomitant]
     Indication: VENTRICULAR EXTRASYSTOLES
     Route: 048
     Dates: start: 19920101
  7. FOLGARD [Concomitant]
     Indication: DRUG USE FOR UNKNOWN INDICATION
     Route: 048
     Dates: start: 20040101
  8. ACETYL SALICYLIC ACID USP BAT [Concomitant]
     Indication: PROPHYLAXIS
     Route: 048
     Dates: start: 19920101
  9. FOLIC ACID [Concomitant]
     Indication: VITAMIN SUPPLEMENTATION
     Route: 048
  10. MULTI-VITAMINS [Concomitant]
     Indication: VITAMIN SUPPLEMENTATION
     Route: 048
     Dates: start: 20040101
  11. CALCIUM GLUCONATE [Concomitant]
     Indication: OSTEOPOROSIS PROPHYLAXIS
     Route: 048
  12. ALENDRONATE SODIUM [Concomitant]
     Indication: OSTEOPOROSIS PROPHYLAXIS
     Route: 048

REACTIONS (1)
  - LUNG CARCINOMA CELL TYPE UNSPECIFIED RECURRENT [None]
